FAERS Safety Report 10019737 (Version 1)
Quarter: 2014Q1

REPORT INFORMATION
  Report Type: Spontaneous
  Country: US (occurrence: US)
  Receive Date: 20140318
  Receipt Date: 20140318
  Transmission Date: 20141002
  Serious: No
  Sender: FDA-Public Use
  Company Number: US-GALDERMA-US14000170

PATIENT
  Age: 63 Year
  Sex: Female

DRUGS (10)
  1. MIRVASO (BRIMONIDINE) TOPICAL GEL, 0.33% [Suspect]
     Indication: ROSACEA
     Dosage: 0.33%
     Route: 061
     Dates: start: 20131108, end: 20140109
  2. SYNTHYROID [Concomitant]
     Indication: HYPOTHYROIDISM
     Dosage: 0.75 MCG
     Route: 048
  3. ATIVAN [Concomitant]
     Indication: INSOMNIA
     Route: 048
  4. CHEMOTHERAPY INFUSION [Concomitant]
     Indication: LYMPHOMA
     Dates: start: 2013
  5. INTRAVENOUS IMMUNOGLOBULIN INFUSION [Concomitant]
     Indication: LYMPHOMA
     Dates: start: 2013
  6. CETAPHIL GENTLE SKIN CLEANSER [Concomitant]
     Indication: THERAPEUTIC SKIN CARE TOPICAL
     Route: 061
  7. AVEENO MOISTURIZING BAR [Concomitant]
     Indication: THERAPEUTIC SKIN CARE TOPICAL
     Route: 061
  8. AQUAPHOR SKIN OINTMENT [Concomitant]
     Indication: DRY SKIN PROPHYLAXIS
     Route: 061
  9. NEUTROGEENA ULTRA SHEER DRY TOUCH SPF 45 [Concomitant]
     Indication: PROPHYLAXIS AGAINST SOLAR RADIATION
     Route: 061
  10. FINACEA [Concomitant]
     Indication: ROSACEA
     Route: 061
     Dates: start: 2007

REACTIONS (2)
  - Condition aggravated [Not Recovered/Not Resolved]
  - Erythema [Recovered/Resolved]
